FAERS Safety Report 6310416-4 (Version None)
Quarter: 2009Q3

REPORT INFORMATION
  Report Type: 
  Country: None (occurrence: None)
  Receive Date: 20090814
  Receipt Date: 20090804
  Transmission Date: 20100115
  Serious: Yes (Life-Threatening)
  Sender: FDA-Public Use
  Company Number: US-PFIZER INC-2009227624

PATIENT
  Sex: Female
  Weight: 102.49 kg

DRUGS (12)
  1. XANAX [Suspect]
     Dosage: 0.5 MG, 2X/DAY
     Dates: start: 20080101
  2. LYRICA [Suspect]
     Dosage: 100 MG, 3X/DAY
     Dates: start: 20090407
  3. CYCLOBENZAPRINE [Suspect]
     Indication: RHEUMATOID ARTHRITIS
     Dosage: 30 MG, 1X/DAY
     Route: 048
     Dates: start: 20090429, end: 20090429
  4. CYCLOBENZAPRINE [Suspect]
  5. AMITRIPTYLINE [Concomitant]
     Dosage: 50 MG, 1X/DAY
     Route: 065
     Dates: start: 20080101
  6. LORCET-HD [Concomitant]
     Dosage: 7.5 MG, 3X/DAY
     Dates: start: 20080101
  7. SOMA [Concomitant]
     Dates: start: 20050101
  8. ATENOLOL [Concomitant]
     Dosage: 50 MG, 2X/DAY
     Dates: start: 20060101
  9. HYDROCHLOROTHIAZIDE [Concomitant]
     Dosage: 50 MG, 1X/DAY
     Dates: start: 20060101
  10. FLUTICASONE PROPIONATE [Concomitant]
     Dosage: UNK
     Route: 045
  11. PROTONIX [Concomitant]
     Dosage: 40 MG, 1X/DAY
  12. ALLEGRA [Concomitant]
     Dosage: 180 MG, 1X/DAY

REACTIONS (12)
  - ANXIETY [None]
  - DRUG EFFECT INCREASED [None]
  - DRUG TOXICITY [None]
  - DYSPNOEA [None]
  - MEMORY IMPAIRMENT [None]
  - OVERWEIGHT [None]
  - PAIN [None]
  - SJOGREN'S SYNDROME [None]
  - SOMNOLENCE [None]
  - URINARY INCONTINENCE [None]
  - URINARY RETENTION [None]
  - VOMITING [None]
